FAERS Safety Report 8239290-6 (Version None)
Quarter: 2012Q1

REPORT INFORMATION
  Report Type: 
  Country: None (occurrence: None)
  Receive Date: 20120328
  Receipt Date: 20120320
  Transmission Date: 20120608
  Serious: Yes (Other)
  Sender: FDA-Public Use
  Company Number: US-AMGEN-USASP2012013778

PATIENT
  Age: 34 Year
  Sex: Female

DRUGS (5)
  1. SEASONIQUE [Concomitant]
     Dosage: UNK UNK, QD
     Route: 048
  2. MESTINON [Concomitant]
     Dosage: 40 G, Q4H
     Route: 048
  3. LEXAPRO [Concomitant]
     Dosage: 10 G, QD
     Route: 048
  4. ENBREL [Suspect]
     Indication: PRODUCT USED FOR UNKNOWN INDICATION
     Dosage: 50 MG, QMO
     Route: 058
     Dates: start: 20040625
  5. CELEBREX [Concomitant]
     Dosage: 40 G, QD
     Route: 048

REACTIONS (3)
  - MYASTHENIA GRAVIS [None]
  - BLOOD PRESSURE INCREASED [None]
  - HEART RATE INCREASED [None]
